FAERS Safety Report 5028625-3 (Version None)
Quarter: 2006Q2

REPORT INFORMATION
  Report Type: 
  Country: None (occurrence: None)
  Receive Date: 20060619
  Receipt Date: 20060615
  Transmission Date: 20061013
  Serious: Yes (Death)
  Sender: FDA-Public Use
  Company Number: PHBS2006IE08899

PATIENT
  Age: 74 Year
  Sex: Male

DRUGS (1)
  1. CO-DIOVAN [Suspect]
     Dosage: VALS 80  / HCT 12.5 MG/DAY
     Route: 048

REACTIONS (1)
  - DEATH [None]
